FAERS Safety Report 18775599 (Version 1)
Quarter: 2021Q1

REPORT INFORMATION
  Report Type: Spontaneous
  Country: ES (occurrence: ES)
  Receive Date: 20210122
  Receipt Date: 20210122
  Transmission Date: 20210419
  Serious: Yes (Hospitalization)
  Sender: FDA-Public Use
  Company Number: ES-ALKEM LABORATORIES LIMITED-ES-ALKEM-2021-00176

PATIENT
  Age: 31 Year
  Sex: Female

DRUGS (5)
  1. TIZANIDINE. [Suspect]
     Active Substance: TIZANIDINE
     Indication: MUSCLE CONTRACTURE
     Dosage: 6  MILLIGRAM, QD
  2. TIZANIDINE. [Suspect]
     Active Substance: TIZANIDINE
     Dosage: 2 MILLIGRAM, QD
     Route: 065
  3. TIZANIDINE. [Suspect]
     Active Substance: TIZANIDINE
     Dosage: 2 MILLIGRAM (EVERY 12 HOURS)
     Route: 065
  4. TIZANIDINE. [Suspect]
     Active Substance: TIZANIDINE
     Dosage: 16 MILLIGRAM, QD
     Route: 065
  5. TIZANIDINE. [Suspect]
     Active Substance: TIZANIDINE
     Dosage: 2 MILLIGRAM (EVERY 8 HOURS)
     Route: 065

REACTIONS (10)
  - Withdrawal syndrome [Unknown]
  - Nausea [Recovered/Resolved]
  - Tachycardia [Recovered/Resolved]
  - Hyperthermia [Recovered/Resolved]
  - Hypertension [Recovered/Resolved]
  - Temperature regulation disorder [Recovered/Resolved]
  - Adrenergic syndrome [Recovered/Resolved]
  - Tremor [Recovered/Resolved]
  - Vomiting [Recovered/Resolved]
  - Histrionic personality disorder [Recovered/Resolved]
